FAERS Safety Report 6561989-8 (Version None)
Quarter: 2010Q1

REPORT INFORMATION
  Report Type: 
  Country: None (occurrence: None)
  Receive Date: 20100130
  Receipt Date: 20091102
  Transmission Date: 20100710
  Serious: No
  Sender: FDA-Public Use
  Company Number: US-ABBOTT-07P-163-0376806-00

PATIENT
  Sex: Female
  Weight: 85.352 kg

DRUGS (11)
  1. HUMIRA [Suspect]
     Indication: SCLERITIS
     Route: 058
     Dates: start: 20070705
  2. HUMIRA [Suspect]
     Indication: RHEUMATOID ARTHRITIS
     Dates: start: 20060903
  3. HUMIRA [Suspect]
     Dosage: INCREASED AFTER TWO MONTHS STARTING THERAPY
  4. ENBREL [Concomitant]
     Indication: DRUG USE FOR UNKNOWN INDICATION
  5. METHOTREXATE [Concomitant]
     Indication: DRUG USE FOR UNKNOWN INDICATION
  6. FALAGEN [Concomitant]
     Indication: DRUG USE FOR UNKNOWN INDICATION
  7. RESTASIS [Concomitant]
     Indication: DRUG USE FOR UNKNOWN INDICATION
  8. M.V.I. [Concomitant]
     Indication: DRUG USE FOR UNKNOWN INDICATION
  9. SALAGEN [Concomitant]
     Indication: DRUG USE FOR UNKNOWN INDICATION
  10. PREMARIN [Concomitant]
     Indication: DRUG USE FOR UNKNOWN INDICATION
  11. PREDNISONE [Concomitant]
     Indication: DRUG USE FOR UNKNOWN INDICATION
     Route: 048

REACTIONS (2)
  - DRUG EFFECT DECREASED [None]
  - INJECTION SITE PAIN [None]
